FAERS Safety Report 7438038-2 (Version None)
Quarter: 2011Q2

REPORT INFORMATION
  Report Type: 
  Country: None (occurrence: None)
  Receive Date: 20110426
  Receipt Date: 20110412
  Transmission Date: 20111010
  Serious: Yes (Hospitalization, Other)
  Sender: FDA-Public Use
  Company Number: PHHY2011TH30520

PATIENT
  Sex: Female
  Weight: 54 kg

DRUGS (1)
  1. STI571/CGP57148B [Suspect]
     Indication: GASTROINTESTINAL STROMAL TUMOUR
     Dosage: 800 MG, DAILY
     Route: 048
     Dates: start: 20100712, end: 20110405

REACTIONS (6)
  - LYMPHADENOPATHY [None]
  - PANCREATIC DISORDER [None]
  - ABDOMINAL PAIN [None]
  - METASTASES TO LIVER [None]
  - HEPATIC CYST [None]
  - TUMOUR HAEMORRHAGE [None]
